FAERS Safety Report 16694480 (Version 1)
Quarter: 2019Q3

REPORT INFORMATION
  Report Type: Spontaneous
  Country: JP (occurrence: JP)
  Receive Date: 20190812
  Receipt Date: 20190812
  Transmission Date: 20191004
  Serious: Yes (Hospitalization, Other)
  Sender: FDA-Public Use
  Company Number: JP-EX USA HOLDINGS-EXHL20192334

PATIENT
  Age: 16 Year
  Sex: Female
  Weight: 44.8 kg

DRUGS (1)
  1. DESOGESTREL AND ETHINYL ESTRADIOL [Suspect]
     Active Substance: DESOGESTREL\ETHINYL ESTRADIOL
     Indication: DYSMENORRHOEA
     Dosage: SMALL-DOSE
     Route: 048

REACTIONS (7)
  - Nerve compression [Recovered/Resolved]
  - Abdominal tenderness [Recovered/Resolved]
  - Tachycardia [Recovered/Resolved]
  - Abdominal symptom [Recovered/Resolved]
  - Carnett^s sign positive [Recovered/Resolved]
  - Pyrexia [Recovered/Resolved]
  - Abdominal pain [Recovered/Resolved]
